FAERS Safety Report 19928472 (Version 1)
Quarter: 2021Q4

REPORT INFORMATION
  Report Type: Spontaneous
  Country: CA (occurrence: CA)
  Receive Date: 20211007
  Receipt Date: 20211007
  Transmission Date: 20220303
  Serious: Yes (Life-Threatening)
  Sender: FDA-Public Use
  Company Number: CA-TEVA-2021-CA-1961395

PATIENT
  Age: 75 Year
  Sex: Female

DRUGS (4)
  1. CLOPIDOGREL [Suspect]
     Active Substance: CLOPIDOGREL BISULFATE
     Dosage: 75 MILLIGRAM DAILY;
     Route: 048
  2. ASPIRIN [Suspect]
     Active Substance: ASPIRIN
     Dosage: 81 MILLIGRAM DAILY;
     Route: 048
  3. ENOXAPARIN [Suspect]
     Active Substance: ENOXAPARIN
     Dosage: 160 MILLIGRAM/MILLILITERS DAILY;
     Route: 058
  4. PROTAMINE SULFATE [Concomitant]
     Active Substance: PROTAMINE SULFATE

REACTIONS (7)
  - Acute myocardial infarction [Unknown]
  - Angina unstable [Unknown]
  - Hyperhidrosis [Unknown]
  - Hypotension [Unknown]
  - Nausea [Unknown]
  - Retroperitoneal haemorrhage [Unknown]
  - Vomiting [Unknown]
